FAERS Safety Report 14102425 (Version 6)
Quarter: 2018Q1

REPORT INFORMATION
  Report Type: Spontaneous
  Country: PT (occurrence: PT)
  Receive Date: 20171018
  Receipt Date: 20180226
  Transmission Date: 20180508
  Serious: Yes (Death, Hospitalization, Other)
  Sender: FDA-Public Use
  Company Number: PHHY2017PT153054

PATIENT
  Age: 5 Year
  Sex: Female
  Weight: 16.7 kg

DRUGS (4)
  1. SERETAIDE DISKUS [Concomitant]
     Indication: ASTHMA
     Route: 065
  2. SALBUTAMOL [Concomitant]
     Active Substance: ALBUTEROL
     Indication: ASTHMA
     Route: 065
  3. AMOXICILLIN SANDOZ [Suspect]
     Active Substance: AMOXICILLIN
     Indication: EAR INFECTION
     Dosage: 4.5 ML, CYCLIC
     Route: 048
     Dates: start: 20171005, end: 20171006
  4. MONTELUKAST [Concomitant]
     Active Substance: MONTELUKAST SODIUM
     Indication: ASTHMA
     Dosage: 1 DF, UNK
     Route: 065

REACTIONS (8)
  - Pain [Fatal]
  - Pulmonary haemorrhage [Fatal]
  - Upper gastrointestinal haemorrhage [Fatal]
  - Vomiting [Fatal]
  - Haematemesis [Fatal]
  - Product quality issue [Unknown]
  - Screaming [Fatal]
  - Haematemesis [Fatal]

NARRATIVE: CASE EVENT DATE: 20171005
